FAERS Safety Report 15234946 (Version 1)
Quarter: 2018Q3

REPORT INFORMATION
  Report Type: Spontaneous
  Country: US (occurrence: US)
  Receive Date: 20180803
  Receipt Date: 20180803
  Transmission Date: 20181010
  Serious: Yes (Other)
  Sender: FDA-Public Use
  Company Number: US-ACCORD-065259

PATIENT
  Age: 68 Year
  Sex: Female

DRUGS (11)
  1. NEOSAR [Suspect]
     Active Substance: CYCLOPHOSPHAMIDE
     Indication: BREAST CANCER
     Dosage: 8 CYCLES
     Dates: start: 20131028, end: 20140102
  2. OXYBUTYNIN. [Concomitant]
     Active Substance: OXYBUTYNIN CHLORIDE
     Dates: start: 2015
  3. ATORVASTATIN [Concomitant]
     Active Substance: ATORVASTATIN
     Dates: start: 2016
  4. GLIMEPIRIDE. [Concomitant]
     Active Substance: GLIMEPIRIDE
     Dates: start: 201711
  5. METFORMIN [Concomitant]
     Active Substance: METFORMIN HYDROCHLORIDE
     Dates: start: 201702
  6. CALCIUM GLUCONATE. [Concomitant]
     Active Substance: CALCIUM GLUCONATE
     Dates: start: 2013
  7. LISINOPRIL. [Concomitant]
     Active Substance: LISINOPRIL
     Dates: start: 2013
  8. DOCETAXEL ACCORD [Suspect]
     Active Substance: DOCETAXEL
     Indication: BREAST CANCER
     Dosage: NUMBER OF CYCLES: 08
     Dates: start: 20131028, end: 20140102
  9. GABAPENTIN. [Concomitant]
     Active Substance: GABAPENTIN
     Dates: start: 2015, end: 201711
  10. JANUVIA [Concomitant]
     Active Substance: SITAGLIPTIN PHOSPHATE
     Dates: start: 201711
  11. EXEMESTANE. [Concomitant]
     Active Substance: EXEMESTANE
     Dates: end: 201711

REACTIONS (1)
  - Alopecia [Not Recovered/Not Resolved]

NARRATIVE: CASE EVENT DATE: 201407
